FAERS Safety Report 23816533 (Version 2)
Quarter: 2024Q2

REPORT INFORMATION
  Report Type: Spontaneous
  Country: US (occurrence: US)
  Receive Date: 20240503
  Receipt Date: 20240619
  Transmission Date: 20240715
  Serious: No
  Sender: FDA-Public Use
  Company Number: US-002147023-NVSC2023US131471

PATIENT
  Age: 14 Year
  Sex: Male
  Weight: 42.18 kg

DRUGS (1)
  1. RITALIN [Suspect]
     Active Substance: METHYLPHENIDATE HYDROCHLORIDE
     Indication: Product used for unknown indication
     Dosage: 10 MG, QD(1 TABLET 3PM AS NEEDED)
     Route: 048
     Dates: start: 20211228, end: 20220328

REACTIONS (4)
  - Insomnia [Unknown]
  - Therapeutic product effect prolonged [Unknown]
  - Product substitution issue [Unknown]
  - Product availability issue [Unknown]

NARRATIVE: CASE EVENT DATE: 20211228
